FAERS Safety Report 15098519 (Version 1)
Quarter: 2018Q3

REPORT INFORMATION
  Report Type: Spontaneous
  Country: IT (occurrence: IT)
  Receive Date: 20180702
  Receipt Date: 20180702
  Transmission Date: 20181010
  Serious: Yes (Other)
  Sender: FDA-Public Use
  Company Number: IT-MYLANLABS-2018M1043255

PATIENT
  Sex: Male

DRUGS (1)
  1. MEMANTINE MYLAN [Suspect]
     Active Substance: MEMANTINE
     Indication: DEMENTIA ALZHEIMER^S TYPE
     Dosage: 10 MG, QD
     Route: 048

REACTIONS (2)
  - No adverse event [Unknown]
  - Drug ineffective [Unknown]
